FAERS Safety Report 18088524 (Version 1)
Quarter: 2020Q3

REPORT INFORMATION
  Report Type: Spontaneous
  Country: US (occurrence: US)
  Receive Date: 20200729
  Receipt Date: 20200729
  Transmission Date: 20201103
  Serious: No
  Sender: FDA-Public Use
  Company Number: US-PUMA BIOTECHNOLOGY, LTD.-2020US002631

PATIENT

DRUGS (2)
  1. NERLYNX [Suspect]
     Active Substance: NERATINIB
     Indication: INVASIVE DUCTAL BREAST CARCINOMA
     Dosage: 160 MG, DAILY
     Route: 048
     Dates: start: 202003, end: 20200319
  2. NERLYNX [Suspect]
     Active Substance: NERATINIB
     Indication: HER2 POSITIVE BREAST CANCER
     Dosage: 120 MG, DAILY
     Route: 048
     Dates: start: 20191127, end: 202003

REACTIONS (6)
  - Pruritus [Recovered/Resolved]
  - Insomnia [Recovered/Resolved]
  - Underdose [Unknown]
  - Diarrhoea [Recovered/Resolved]
  - Rash [Recovered/Resolved]
  - Erythema [Recovered/Resolved]

NARRATIVE: CASE EVENT DATE: 20191127
